FAERS Safety Report 21229995 (Version 3)
Quarter: 2022Q4

REPORT INFORMATION
  Report Type: Report from Study
  Country: US (occurrence: US)
  Receive Date: 20220818
  Receipt Date: 20221102
  Transmission Date: 20230113
  Serious: Yes (Hospitalization, Other)
  Sender: FDA-Public Use
  Company Number: US-BoehringerIngelheim-2021-BI-128459

PATIENT
  Age: 60 Year
  Sex: Female

DRUGS (2)
  1. OFEV [Suspect]
     Active Substance: NINTEDANIB
     Indication: Idiopathic pulmonary fibrosis
     Route: 048
     Dates: start: 20210817
  2. OFEV [Suspect]
     Active Substance: NINTEDANIB

REACTIONS (11)
  - Dyspnoea [Unknown]
  - Asthenia [Unknown]
  - Respiratory failure [Unknown]
  - Diarrhoea [Recovered/Resolved]
  - Nausea [Recovered/Resolved]
  - Bronchitis [Unknown]
  - Gastric disorder [Recovered/Resolved]
  - Rheumatoid arthritis [Unknown]
  - Nausea [Unknown]
  - Abdominal discomfort [Unknown]
  - Food poisoning [Unknown]

NARRATIVE: CASE EVENT DATE: 20210801
